FAERS Safety Report 24002473 (Version 3)
Quarter: 2024Q3

REPORT INFORMATION
  Report Type: Report from Study
  Country: RO (occurrence: RO)
  Receive Date: 20240623
  Receipt Date: 20240711
  Transmission Date: 20241017
  Serious: Yes (Hospitalization, Other)
  Sender: NOVARTIS
  Company Number: RO-002147023-NVSC2024RO120138

PATIENT
  Age: 75 Year
  Sex: Female

DRUGS (9)
  1. ELTROMBOPAG OLAMINE [Suspect]
     Active Substance: ELTROMBOPAG OLAMINE
     Indication: Platelet count decreased
     Dosage: 50 MG, QD (MORNING)
     Route: 048
     Dates: start: 2020, end: 20240614
  2. ELTROMBOPAG OLAMINE [Suspect]
     Active Substance: ELTROMBOPAG OLAMINE
     Indication: Thrombocytosis
     Dosage: 75 MG, QD (50 MG PLUS 25 MG)
     Route: 048
     Dates: start: 20240614
  3. INSULIN NOS [Concomitant]
     Active Substance: INSULIN NOS
     Indication: Diabetes mellitus
     Dosage: UNK, BID
     Route: 065
  4. BETAHISTINE [Concomitant]
     Active Substance: BETAHISTINE
     Indication: Cardiac disorder
     Dosage: 24 MG, BID
     Route: 065
  5. METOPROLOL [Concomitant]
     Active Substance: METOPROLOL
     Indication: Cardiac disorder
     Dosage: 50 MG, BID
     Route: 065
  6. AMLODIPINE BESYLATE\INDAPAMIDE\PERINDOPRIL ARGININE [Concomitant]
     Active Substance: AMLODIPINE BESYLATE\INDAPAMIDE\PERINDOPRIL ARGININE
     Indication: Blood pressure measurement
     Dosage: 1 DOSAGE FORM, QD (10MG/2,5MG /5MG)
     Route: 065
  7. FENTICONAZOLE NITRATE [Concomitant]
     Active Substance: FENTICONAZOLE NITRATE
     Indication: Atrophic vulvovaginitis
     Dosage: UNK, QMO
     Route: 065
  8. FENTICONAZOLE NITRATE [Concomitant]
     Active Substance: FENTICONAZOLE NITRATE
     Indication: Atrophic vulvovaginitis
     Dosage: UNK, QD
     Route: 065
  9. SELEGOS [Concomitant]
     Indication: Parkinson^s disease
     Dosage: 5 MG, BID
     Route: 065

REACTIONS (6)
  - Platelet count decreased [Not Recovered/Not Resolved]
  - Fall [Recovered/Resolved]
  - Upper limb fracture [Recovered/Resolved]
  - Dizziness [Recovered/Resolved]
  - Pain [Not Recovered/Not Resolved]
  - Abdominal pain upper [Not Recovered/Not Resolved]

NARRATIVE: CASE EVENT DATE: 20230101
